FAERS Safety Report 12253837 (Version 6)
Quarter: 2018Q3

REPORT INFORMATION
  Report Type: Spontaneous
  Country: US (occurrence: US)
  Receive Date: 20160411
  Receipt Date: 20180917
  Transmission Date: 20181010
  Serious: Yes (Hospitalization)
  Sender: FDA-Public Use
  Company Number: US-ABBVIE-16P-163-1601813-00

PATIENT
  Sex: Male

DRUGS (7)
  1. XTANDI [Suspect]
     Active Substance: ENZALUTAMIDE
     Indication: PROSTATE CANCER
     Dosage: REGIMEN #1
     Route: 048
     Dates: end: 20150815
  2. XTANDI [Suspect]
     Active Substance: ENZALUTAMIDE
     Dosage: REGIMEN #2
     Route: 048
     Dates: start: 20150818
  3. XTANDI [Suspect]
     Active Substance: ENZALUTAMIDE
     Dosage: REGIMEN #4 FREQUENCY UNKNOWN
     Route: 048
  4. XTANDI [Suspect]
     Active Substance: ENZALUTAMIDE
     Route: 048
  5. LUPRON [Suspect]
     Active Substance: LEUPROLIDE ACETATE
     Indication: PRODUCT USED FOR UNKNOWN INDICATION
     Dosage: UNKNOWN FREQUENCY
     Route: 065
  6. XTANDI [Suspect]
     Active Substance: ENZALUTAMIDE
     Dosage: REGIMEN #3
     Route: 048
     Dates: start: 20150825
  7. XTANDI [Suspect]
     Active Substance: ENZALUTAMIDE
     Dosage: REGIMEN #5
     Route: 048

REACTIONS (31)
  - Dizziness [Unknown]
  - Rhinorrhoea [Unknown]
  - Back pain [Not Recovered/Not Resolved]
  - Vision blurred [Unknown]
  - Headache [Unknown]
  - Vertigo [Unknown]
  - Blood pressure increased [Unknown]
  - Blood pressure increased [Unknown]
  - Headache [Recovered/Resolved]
  - Incorrect dose administered [Unknown]
  - Confusional state [Unknown]
  - Musculoskeletal stiffness [Unknown]
  - Diarrhoea [Recovered/Resolved]
  - Dry skin [Unknown]
  - Sinus congestion [Unknown]
  - Sinus congestion [Unknown]
  - Disorientation [Unknown]
  - Dysuria [Unknown]
  - Anxiety [Unknown]
  - Fatigue [Unknown]
  - Back pain [Recovered/Resolved]
  - Asthenia [Unknown]
  - Paranasal sinus discomfort [Unknown]
  - Hair texture abnormal [Unknown]
  - Sinusitis [Unknown]
  - Memory impairment [Unknown]
  - Abdominal discomfort [Unknown]
  - Dyspnoea [Recovered/Resolved]
  - Insomnia [Recovered/Resolved]
  - Paranasal sinus discomfort [Unknown]
  - Bladder disorder [Unknown]

NARRATIVE: CASE EVENT DATE: 2015
